FAERS Safety Report 9106452 (Version 2)
Quarter: 2013Q3

REPORT INFORMATION
  Report Type: Spontaneous
  Country: US (occurrence: US)
  Receive Date: 20130221
  Receipt Date: 20130906
  Transmission Date: 20140515
  Serious: No
  Sender: FDA-Public Use
  Company Number: US-ASTRAZENECA-2013SE09796

PATIENT
  Age: 83 Year
  Sex: Female

DRUGS (14)
  1. ATENOLOL [Suspect]
     Route: 065
  2. NEXIUM [Suspect]
     Route: 048
  3. CAPRELSA [Suspect]
     Indication: MEDULLARY THYROID CANCER
     Route: 048
     Dates: start: 20130128
  4. CAPRELSA [Suspect]
     Indication: MEDULLARY THYROID CANCER
     Route: 048
  5. ASA [Concomitant]
  6. CALCIUM [Concomitant]
  7. CITRACEL [Concomitant]
  8. LYRICA [Concomitant]
  9. PREDNISONE [Concomitant]
  10. PROGESTERONE [Concomitant]
  11. SYNTHROID [Concomitant]
  12. TYLENOL [Concomitant]
  13. CIPROFLOXACIN [Concomitant]
  14. VITAMIN D [Concomitant]

REACTIONS (4)
  - Throat irritation [Unknown]
  - Oropharyngeal pain [Unknown]
  - Erythema [Unknown]
  - Pruritus [Unknown]
